FAERS Safety Report 4402345-8 (Version None)
Quarter: 2004Q3

REPORT INFORMATION
  Report Type: 
  Country: None (occurrence: None)
  Receive Date: 20040715
  Receipt Date: 20000316
  Transmission Date: 20050211
  Serious: Yes (Hospitalization)
  Sender: FDA-Public Use
  Company Number: 2000-BL-00017(1)

PATIENT
  Age: 36 Year

DRUGS (7)
  1. VIRAMUNE [Suspect]
     Indication: HIV INFECTION
     Dosage: 200 MG (200 MG, 1/2 TAB BID)
     Route: 048
     Dates: start: 20000118, end: 20000125
  2. ZIDOVUDINE (ZIDOVUDINE) (KA) [Concomitant]
  3. LAMIVUDINE (LAMIVUDINE) (KA) [Concomitant]
  4. ABACAVIR (ABACAVIR) T(A) [Concomitant]
  5. HYDROXYUREA (HYDROXYXCARBAMINE) (KA) [Concomitant]
  6. METHADONE (METHADONE) (NR) [Concomitant]
  7. PREDNISOLONE (PREDNISOLONE) (TA) [Concomitant]

REACTIONS (2)
  - DRUG WITHDRAWAL SYNDROME [None]
  - PSYCHOTIC DISORDER [None]
